FAERS Safety Report 4998037-7 (Version None)
Quarter: 2006Q2

REPORT INFORMATION
  Report Type: 
  Country: None (occurrence: None)
  Receive Date: 20060508
  Receipt Date: 20060505
  Transmission Date: 20061013
  Serious: Yes (Other)
  Sender: FDA-Public Use
  Company Number: 221419

PATIENT
  Age: 62 Year
  Sex: Male

DRUGS (1)
  1. RAPTIVA [Suspect]
     Indication: PSORIASIS
     Dosage: 0.7 L, 1/WEEK, SUBCUTANEOUS
     Route: 058
     Dates: start: 20050620

REACTIONS (6)
  - ANAEMIA [None]
  - EPISTAXIS [None]
  - FATIGUE [None]
  - MOUTH HAEMORRHAGE [None]
  - PLATELET COUNT DECREASED [None]
  - RECTAL HAEMORRHAGE [None]
